FAERS Safety Report 15067516 (Version 1)
Quarter: 2018Q2

REPORT INFORMATION
  Report Type: Spontaneous
  Country: US (occurrence: US)
  Receive Date: 20180626
  Receipt Date: 20180626
  Transmission Date: 20180711
  Serious: No
  Sender: FDA-Public Use
  Company Number: US-BAYER-2018-119330

PATIENT
  Age: 77 Year
  Sex: Male
  Weight: 68.03 kg

DRUGS (1)
  1. ALEVE [Suspect]
     Active Substance: NAPROXEN SODIUM
     Indication: PAIN
     Dosage: DAILY DOSE 3 DF
     Route: 048
     Dates: start: 2007

REACTIONS (1)
  - Drug ineffective [Unknown]
